FAERS Safety Report 7698980-4 (Version None)
Quarter: 2011Q3

REPORT INFORMATION
  Report Type: 
  Country: None (occurrence: None)
  Receive Date: 20110819
  Receipt Date: 20110804
  Transmission Date: 20111222
  Serious: Yes (Other)
  Sender: FDA-Public Use
  Company Number: GB-BAYER-2011-068674

PATIENT
  Age: 59 Year
  Sex: Female
  Weight: 90 kg

DRUGS (26)
  1. DIAZEPAM [Concomitant]
     Dosage: UNK
     Dates: start: 20110505, end: 20110602
  2. LANSOPRAZOLE [Concomitant]
     Dosage: UNK
     Dates: start: 20110330, end: 20110427
  3. SIMVASTATIN [Concomitant]
     Dosage: UNK
     Dates: start: 20110401, end: 20110429
  4. TEMAZEPAM [Concomitant]
     Dosage: UNK
     Dates: start: 20110505, end: 20110602
  5. VENTOLIN HFA [Concomitant]
     Dosage: UNK
     Dates: start: 20110627, end: 20110725
  6. ADCAL [Concomitant]
     Dosage: UNK
     Dates: start: 20110505, end: 20110602
  7. ALENDRONIC ACID [Concomitant]
     Dosage: UNK
     Dates: start: 20110610, end: 20110708
  8. FLUCONAZOLE [Concomitant]
     Dosage: UNK
     Dates: start: 20110705, end: 20110706
  9. GABAPENTIN [Concomitant]
     Dosage: UNK
     Dates: start: 20110505, end: 20110604
  10. ADCAL [Concomitant]
     Dosage: UNK
     Dates: start: 20110610, end: 20110708
  11. CLARITHROMYCIN [Concomitant]
     Dosage: UNK
     Dates: start: 20110627, end: 20110704
  12. DICLOFENAC SODIUM [Concomitant]
     Dosage: UNK
     Dates: start: 20110627, end: 20110707
  13. SIMVASTATIN [Concomitant]
     Dosage: UNK
     Dates: start: 20110505, end: 20110602
  14. CODEINE PHOSPHATE AND ACETAMINOPHEN [Suspect]
  15. ADCAL [Concomitant]
     Dosage: UNK
     Dates: start: 20110330, end: 20110427
  16. ALENDRONIC ACID [Concomitant]
     Dosage: UNK
     Dates: start: 20110505, end: 20110602
  17. TEMAZEPAM [Concomitant]
     Dosage: UNK
     Dates: start: 20110610, end: 20110708
  18. ALENDRONIC ACID [Concomitant]
     Dosage: UNK
     Dates: start: 20110330, end: 20110427
  19. DIAZEPAM [Concomitant]
     Dosage: UNK
     Dates: start: 20110630
  20. ESTRADERM [Concomitant]
     Dosage: UNK
     Dates: start: 20110215, end: 20110510
  21. GABAPENTIN [Concomitant]
     Dosage: UNK
     Dates: start: 20110610, end: 20110710
  22. ANUSOL-HC [BENZYL,BI+,HYDROCORT,MYROXYL BALSAM VAR. PEREIR BALSAM, [Concomitant]
     Dosage: UNK
     Dates: start: 20110525, end: 20110529
  23. CARBOCISTEINE [Concomitant]
     Dosage: UNK
     Dates: start: 20110627, end: 20110628
  24. DIAZEPAM [Concomitant]
     Dosage: UNK
     Dates: start: 20110610, end: 20110708
  25. SIMVASTATIN [Concomitant]
     Dosage: UNK
     Dates: start: 20110610
  26. TEMAZEPAM [Concomitant]
     Dosage: UNK
     Dates: start: 20110330, end: 20110427

REACTIONS (2)
  - VOMITING [None]
  - RASH [None]
